FAERS Safety Report 21068664 (Version 4)
Quarter: 2023Q1

REPORT INFORMATION
  Report Type: Report from Study
  Country: US (occurrence: US)
  Receive Date: 20220712
  Receipt Date: 20230327
  Transmission Date: 20230417
  Serious: Yes (Hospitalization, Other)
  Sender: FDA-Public Use
  Company Number: US-TAKEDA-2022TUS045753

PATIENT
  Age: 91 Year
  Sex: Male
  Weight: 68 kg

DRUGS (2)
  1. BRIGATINIB [Suspect]
     Active Substance: BRIGATINIB
     Indication: Lung neoplasm malignant
     Dosage: 60 MILLIGRAM, QD
     Route: 065
     Dates: start: 202201
  2. BRIGATINIB [Suspect]
     Active Substance: BRIGATINIB
     Indication: Neoplasm

REACTIONS (11)
  - COVID-19 [Unknown]
  - Internal haemorrhage [Unknown]
  - Macular degeneration [Unknown]
  - Glaucoma [Unknown]
  - Blood creatinine decreased [Unknown]
  - Hypoacusis [Unknown]
  - Joint swelling [Recovering/Resolving]
  - Renal disorder [Unknown]
  - Blood creatinine increased [Unknown]
  - Peripheral swelling [Unknown]
  - Product dose omission issue [Unknown]

NARRATIVE: CASE EVENT DATE: 20220101
